FAERS Safety Report 17539312 (Version 1)
Quarter: 2020Q1

REPORT INFORMATION
  Report Type: Spontaneous
  Country: GB (occurrence: GB)
  Receive Date: 20200313
  Receipt Date: 20200313
  Transmission Date: 20200409
  Serious: Yes (Death, Life-Threatening)
  Sender: FDA-Public Use
  Company Number: GB-TORRENT-00023078

PATIENT
  Age: 55 Year
  Sex: Male

DRUGS (5)
  1. SILDENAFIL. [Suspect]
     Active Substance: SILDENAFIL
     Indication: ERECTILE DYSFUNCTION
     Dosage: AS NECESSARY
     Route: 048
     Dates: start: 20200105
  2. METFORMIN [Concomitant]
     Active Substance: METFORMIN HYDROCHLORIDE
     Indication: PRODUCT USED FOR UNKNOWN INDICATION
  3. ESOMEPRAZOLE MAGNESIUM. [Concomitant]
     Active Substance: ESOMEPRAZOLE MAGNESIUM
     Indication: PRODUCT USED FOR UNKNOWN INDICATION
  4. FOLIC ACID. [Concomitant]
     Active Substance: FOLIC ACID
     Indication: PRODUCT USED FOR UNKNOWN INDICATION
  5. DAPAGLIFLOZIN PROPANEDIOL. [Concomitant]
     Active Substance: DAPAGLIFLOZIN PROPANEDIOL
     Indication: PRODUCT USED FOR UNKNOWN INDICATION

REACTIONS (2)
  - Loss of consciousness [Not Recovered/Not Resolved]
  - Acute myocardial infarction [Fatal]

NARRATIVE: CASE EVENT DATE: 20200105
